FAERS Safety Report 5140516-6 (Version None)
Quarter: 2006Q4

REPORT INFORMATION
  Report Type: 
  Country: None (occurrence: None)
  Receive Date: 20061031
  Receipt Date: 20061026
  Transmission Date: 20070319
  Serious: Yes (Hospitalization)
  Sender: FDA-Public Use
  Company Number: AU-BRISTOL-MYERS SQUIBB COMPANY-13558192

PATIENT
  Age: 65 Year
  Sex: Female
  Weight: 100 kg

DRUGS (9)
  1. PRAVACHOL [Suspect]
  2. CIPROFLOXACIN [Suspect]
     Dates: start: 20050107, end: 20050707
  3. ENDEP [Concomitant]
  4. LOSEC [Concomitant]
  5. MOTILIUM [Concomitant]
  6. LASIX [Concomitant]
  7. LANOXIN [Concomitant]
  8. SODIUM BICARBONATE [Concomitant]
  9. DIAZEPAM [Concomitant]

REACTIONS (3)
  - BLOOD CREATINE PHOSPHOKINASE INCREASED [None]
  - BLOOD CREATININE INCREASED [None]
  - LIVER FUNCTION TEST ABNORMAL [None]
